FAERS Safety Report 15657407 (Version 3)
Quarter: 2024Q3

REPORT INFORMATION
  Report Type: Spontaneous
  Country: DE (occurrence: DE)
  Receive Date: 20181126
  Receipt Date: 20240926
  Transmission Date: 20241017
  Serious: Yes (Life-Threatening, Hospitalization, Other)
  Sender: SANOFI AVENTIS
  Company Number: DE-SAKK-2018SA318070AA

PATIENT
  Age: 69 Year
  Sex: Male

DRUGS (3)
  1. DOCETAXEL [Suspect]
     Active Substance: DOCETAXEL\DOCETAXEL ANHYDROUS
     Indication: Prostate cancer
     Dosage: UNK
  2. DOCETAXEL [Suspect]
     Active Substance: DOCETAXEL\DOCETAXEL ANHYDROUS
     Indication: Metastases to bone
  3. DOCETAXEL [Suspect]
     Active Substance: DOCETAXEL\DOCETAXEL ANHYDROUS
     Indication: Prostate cancer metastatic

REACTIONS (10)
  - Acute cholecystitis necrotic [Recovering/Resolving]
  - Eubacterium infection [Recovering/Resolving]
  - Gangrene [Unknown]
  - Cellulitis [Unknown]
  - Bacterial infection [Unknown]
  - Adhesion [Unknown]
  - General physical health deterioration [Unknown]
  - Anaemia [Unknown]
  - Abdominal pain upper [Unknown]
  - Diarrhoea [Unknown]
